FAERS Safety Report 7618950-1 (Version None)
Quarter: 2011Q3

REPORT INFORMATION
  Report Type: 
  Country: None (occurrence: None)
  Receive Date: 20110718
  Receipt Date: 20110715
  Transmission Date: 20111222
  Serious: Yes (Other)
  Sender: FDA-Public Use
  Company Number: US-AMGEN-USASP2011034597

PATIENT
  Age: 78 Year
  Sex: Female
  Weight: 69.388 kg

DRUGS (12)
  1. ATIVAN [Concomitant]
  2. VITAMIN D [Concomitant]
  3. FUROSEMIDE [Concomitant]
  4. VITAMIN B12                        /00056201/ [Concomitant]
  5. NPLATE [Suspect]
     Indication: IDIOPATHIC THROMBOCYTOPENIC PURPURA
     Dates: start: 20110615
  6. MUCINEX [Concomitant]
  7. LOSARTAN POTASSIUM [Concomitant]
  8. POTASSIUM CHLORIDE [Concomitant]
  9. RISEDRONATE SODIUM [Concomitant]
  10. NIACIN [Concomitant]
  11. CORTICOSTEROIDS [Concomitant]
  12. CETIRIZINE HCL [Concomitant]

REACTIONS (2)
  - TINEA INFECTION [None]
  - OVARIAN CYST [None]
